FAERS Safety Report 10160329 (Version 1)
Quarter: 2014Q2

REPORT INFORMATION
  Report Type: Spontaneous
  Country: US (occurrence: US)
  Receive Date: 20140508
  Receipt Date: 20140508
  Transmission Date: 20141212
  Serious: Yes (Hospitalization)
  Sender: FDA-Public Use
  Company Number: US-GLAXOSMITHKLINE-A1071394A

PATIENT
  Age: 86 Year
  Sex: Male

DRUGS (2)
  1. VOTRIENT [Suspect]
     Indication: RENAL CELL CARCINOMA
     Dosage: 4TAB PER DAY
     Route: 048
     Dates: start: 201110
  2. ANTIBIOTICS [Concomitant]

REACTIONS (6)
  - Immunodeficiency [Unknown]
  - Urinary tract infection [Unknown]
  - Catheter placement [Unknown]
  - Infection [Unknown]
  - Therapeutic response changed [Unknown]
  - Feeling abnormal [Unknown]
